FAERS Safety Report 6762044-4 (Version None)
Quarter: 2010Q2

REPORT INFORMATION
  Report Type: 
  Country: None (occurrence: None)
  Receive Date: 20100609
  Receipt Date: 20100528
  Transmission Date: 20101027
  Serious: Yes (Death, Life-Threatening, Hospitalization)
  Sender: FDA-Public Use
  Company Number: FR-MILLENNIUM PHARMACEUTICALS, INC.-2008-02056

PATIENT

DRUGS (8)
  1. VELCADE [Suspect]
     Indication: MANTLE CELL LYMPHOMA
     Dosage: 1.3 MG/M2, UNK
     Route: 042
     Dates: start: 20080509, end: 20080519
  2. RITUXIMAB [Suspect]
     Indication: MANTLE CELL LYMPHOMA
     Dosage: 375 MG/M2, UNK
     Route: 042
     Dates: start: 20080509, end: 20080509
  3. ADRIBLASTINE [Suspect]
     Indication: MULTIPLE MYELOMA
     Dosage: 9 MG/M2, UNK
     Route: 042
     Dates: start: 20080509, end: 20080512
  4. DEXAMETHASONE [Suspect]
     Indication: MANTLE CELL LYMPHOMA
     Dosage: 20 MG, UNK
     Route: 042
     Dates: start: 20080509, end: 20080509
  5. MICARDIS [Concomitant]
     Indication: HYPERTENSION
     Dosage: 80 MG, UNK
  6. LOXEN [Concomitant]
     Indication: HYPERTENSION
  7. TAHOR [Concomitant]
     Indication: HYPERCHOLESTEROLAEMIA
  8. CORTANCYL [Concomitant]
     Indication: THROMBOCYTOPENIA

REACTIONS (1)
  - SEPTIC SHOCK [None]
